FAERS Safety Report 8324852-8 (Version None)
Quarter: 2012Q2

REPORT INFORMATION
  Report Type: 
  Country: None (occurrence: None)
  Receive Date: 20120427
  Receipt Date: 20120418
  Transmission Date: 20120825
  Serious: Yes (Hospitalization, Other)
  Sender: FDA-Public Use
  Company Number: 2009JP007145

PATIENT
  Age: 48 Year
  Sex: Male
  Weight: 62.8 kg

DRUGS (44)
  1. PHENYTOIN [Suspect]
     Indication: C-REACTIVE PROTEIN INCREASED
     Dosage: 300 MG, /D, ORAL; 200 MG, /D, ORAL; 200 MG, /D, ORAL
     Route: 048
     Dates: end: 20090622
  2. PHENYTOIN [Suspect]
     Indication: C-REACTIVE PROTEIN INCREASED
     Dosage: 300 MG, /D, ORAL; 200 MG, /D, ORAL; 200 MG, /D, ORAL
     Route: 048
     Dates: start: 20090701, end: 20090915
  3. PHENYTOIN [Suspect]
     Indication: C-REACTIVE PROTEIN INCREASED
     Dosage: 300 MG, /D, ORAL; 200 MG, /D, ORAL; 200 MG, /D, ORAL
     Route: 048
     Dates: start: 20090916
  4. TORSEMIDE [Concomitant]
  5. FOLIC ACID [Concomitant]
  6. MINOCYCLINE (MINOCYCLINE HYDROCHLORIDE) [Concomitant]
  7. SUMILU (FELBINAC) [Concomitant]
  8. GENTAMICIN SULFATE [Concomitant]
  9. MINOCYCLINE HYDROCHLORIDE [Suspect]
     Indication: PROTEIN C
     Dosage: 200 MG, /D, ORAL
     Route: 048
     Dates: start: 20090615, end: 20090622
  10. LASIX [Concomitant]
  11. INDAPAMIDE [Concomitant]
  12. FERROMIA (FERROUS SODIUM CITRATE) [Concomitant]
  13. SELBEX (TEPRENONE) [Concomitant]
  14. LEVOTHYROXINE SODIUM [Concomitant]
  15. ISONIAZID [Concomitant]
  16. ALDACTONE [Concomitant]
  17. FAMOTIDINE [Concomitant]
  18. VITAMEDIN (BENFOTIAMINE) [Concomitant]
  19. ZONISAMIDE [Concomitant]
  20. PHENOBARBITAL TAB [Concomitant]
  21. PYDOXAL (PYRIDOXAL PHOSPHATE) [Concomitant]
  22. FLURBIPROFEN [Concomitant]
  23. ESPO (EPOETIN ALFA) [Concomitant]
  24. ALLOPURINOL [Concomitant]
  25. POSTERISAN FORTE (ESCHERICHIA COLI, HYDROCORTISONE) OINTMENT [Concomitant]
  26. SELTOUCH (FELBINAC) [Concomitant]
  27. ALINAMIN-F (FURSULTIAMINE HYDROCHLORIDE) [Concomitant]
  28. PREDNISOLONE [Suspect]
     Indication: LUPUS NEPHRITIS
     Dosage: 15 MG, /D, ORAL; 12.5 MG, /D, ORAL; 10MG, /D, ORAL
     Route: 048
     Dates: start: 20091014, end: 20100202
  29. PREDNISOLONE [Suspect]
     Indication: LUPUS NEPHRITIS
     Dosage: 15 MG, /D, ORAL; 12.5 MG, /D, ORAL; 10MG, /D, ORAL
     Route: 048
     Dates: end: 20091013
  30. PREDNISOLONE [Suspect]
     Indication: LUPUS NEPHRITIS
     Dosage: 15 MG, /D, ORAL; 12.5 MG, /D, ORAL; 10MG, /D, ORAL
     Route: 048
     Dates: start: 20100203
  31. CLINDAMYCIN HYDROCHLORIDE [Suspect]
     Indication: C-REACTIVE PROTEIN INCREASED
     Dosage: 600 MG, /D, ORAL
     Route: 048
     Dates: start: 20090615, end: 20090622
  32. LOSARTAN POTASSIUM [Concomitant]
  33. WARFARIN SODIUM [Concomitant]
  34. FOSAMAX [Concomitant]
  35. KETOPROFEN [Concomitant]
  36. MEIACT (CEFDITOREN PIVOXIL) [Concomitant]
  37. CEFAZOLIN [Concomitant]
  38. BAKTAR (SULFAMETHOXAZOLE, TRIMETHOPRIM) TABLET [Concomitant]
  39. AVELOX [Concomitant]
  40. TACROLIMUS [Suspect]
     Indication: LUPUS NEPHRITIS
     Dosage: 3 MG, /D, ORAL
     Route: 048
     Dates: start: 20080215
  41. CLINDAMYCIN PHOSPHATE [Suspect]
     Indication: C-REACTIVE PROTEIN INCREASED
     Dosage: 1200 MG, /D, ORAL
     Route: 048
     Dates: start: 20090611, end: 20090615
  42. CLINDAMYCIN PHOSPHATE [Suspect]
     Indication: C-REACTIVE PROTEIN INCREASED
     Dosage: 1200 MG, /D, ORAL
     Route: 048
     Dates: start: 20090630, end: 20090714
  43. PRAVASTATIN [Concomitant]
  44. LULICON (LULICONAZOLE) CREAM [Concomitant]

REACTIONS (9)
  - HYPOKALAEMIA [None]
  - ALTERED STATE OF CONSCIOUSNESS [None]
  - CLAVICLE FRACTURE [None]
  - RECTAL PROLAPSE [None]
  - INTERNATIONAL NORMALISED RATIO INCREASED [None]
  - PNEUMONIA [None]
  - C-REACTIVE PROTEIN INCREASED [None]
  - PRURITUS [None]
  - PROTHROMBIN TIME PROLONGED [None]
